FAERS Safety Report 5123931-6 (Version None)
Quarter: 2006Q3

REPORT INFORMATION
  Report Type: 
  Country: None (occurrence: None)
  Receive Date: 20060811
  Receipt Date: 20060530
  Transmission Date: 20061208
  Serious: No
  Sender: FDA-Public Use
  Company Number: S06-USA-02112-01

PATIENT
  Age: 72 Year
  Sex: 0

DRUGS (4)
  1. NAMENDA [Suspect]
     Indication: DEMENTIA ALZHEIMER'S TYPE
     Dosage: 10 MG BID PO
     Route: 048
     Dates: start: 20040101
  2. GLUCOPHAGE [Concomitant]
  3. UNKNOWN MEDICATION [Concomitant]
  4. VITAMINS [Concomitant]

REACTIONS (1)
  - HOT FLUSH [None]
